FAERS Safety Report 5780486-0 (Version None)
Quarter: 2008Q2

REPORT INFORMATION
  Report Type: 
  Country: None (occurrence: None)
  Receive Date: 20080620
  Receipt Date: 20080612
  Transmission Date: 20081010
  Serious: No
  Sender: FDA-Public Use
  Company Number: FR-JNJFOC-20080600047

PATIENT
  Age: 84 Year
  Sex: Male

DRUGS (3)
  1. GALANTAMINE HYDROBROMIDE [Suspect]
     Route: 048
  2. GALANTAMINE HYDROBROMIDE [Suspect]
     Route: 048
  3. GALANTAMINE HYDROBROMIDE [Suspect]
     Indication: DRUG USE FOR UNKNOWN INDICATION
     Route: 048

REACTIONS (1)
  - DRUG ADMINISTRATION ERROR [None]
